FAERS Safety Report 5096270-X (Version None)
Quarter: 2006Q3

REPORT INFORMATION
  Report Type: 
  Country: None (occurrence: None)
  Receive Date: 20060905
  Receipt Date: 20060824
  Transmission Date: 20061208
  Serious: Yes (Hospitalization)
  Sender: FDA-Public Use
  Company Number: US-ROCHE-461226

PATIENT
  Age: 44 Year
  Sex: Female
  Weight: 58 kg

DRUGS (3)
  1. CAPECITABINE [Suspect]
     Dosage: REPORTED THAT PATIENT WAS IN THE PHASE I PORTION OF THE STUDY AT THE 4000MG DAILY DOSING LEVEL.
     Route: 048
     Dates: start: 20060517
  2. ENALAPRIL [Concomitant]
  3. PROCHLORPERAZINE TAB [Concomitant]
     Dosage: FREQUENCY REPORTED AS ^PRN^.

REACTIONS (10)
  - ANGIONEUROTIC OEDEMA [None]
  - BLOOD ALKALINE PHOSPHATASE INCREASED [None]
  - FACE OEDEMA [None]
  - HAEMATOCRIT DECREASED [None]
  - HAEMOGLOBIN DECREASED [None]
  - NEUTROPHIL COUNT DECREASED [None]
  - RED BLOOD CELL COUNT DECREASED [None]
  - RED CELL DISTRIBUTION WIDTH DECREASED [None]
  - SWELLING FACE [None]
  - WHITE BLOOD CELL COUNT DECREASED [None]
